FAERS Safety Report 5192039-6 (Version None)
Quarter: 2006Q4

REPORT INFORMATION
  Report Type: 
  Country: None (occurrence: None)
  Receive Date: 20061221
  Receipt Date: 20061221
  Transmission Date: 20070319
  Serious: Yes (Hospitalization)
  Sender: FDA-Public Use
  Company Number: None

PATIENT
  Age: 74 Year
  Sex: Male

DRUGS (3)
  1. COUMADIN [Suspect]
     Indication: DEEP VEIN THROMBOSIS
     Dosage: 5MG DAILY
  2. COUMADIN [Suspect]
     Indication: PULMONARY EMBOLISM
     Dosage: 5MG DAILY
  3. LOVENOX [Suspect]
     Dosage: 1MG/KG

REACTIONS (1)
  - LOWER GASTROINTESTINAL HAEMORRHAGE [None]
